FAERS Safety Report 8901740 (Version 4)
Quarter: 2013Q1

REPORT INFORMATION
  Report Type: Spontaneous
  Country: US (occurrence: None)
  Receive Date: 20121105
  Receipt Date: 20130315
  Transmission Date: 20140127
  Serious: Yes (Hospitalization, Other)
  Sender: FDA-Public Use
  Company Number: ACO_32697_2012

PATIENT
  Age: 41 Year
  Sex: Female

DRUGS (1)
  1. AMPYRA [Suspect]
     Indication: PRODUCT USED FOR UNKNOWN INDICATION
     Dosage: Q 12 HRS
     Dates: start: 20120524

REACTIONS (3)
  - Myocardial infarction [None]
  - Stress cardiomyopathy [None]
  - Coronary artery stenosis [None]
